FAERS Safety Report 8758209 (Version 2)
Quarter: 2012Q4

REPORT INFORMATION
  Report Type: 
  Country: KR (occurrence: KR)
  Receive Date: 20120829
  Receipt Date: 20120829
  Transmission Date: 20130627
  Serious: No
  Sender: FDA-Public Use
  Company Number: KR-ELI_LILLY_AND_COMPANY-KR200512001686

PATIENT
  Age: 52 Year
  Sex: Male

DRUGS (1)
  1. CIALIS [Suspect]
     Indication: ERECTILE DYSFUNCTION
     Dosage: 20 mg, UNK
     Route: 048

REACTIONS (5)
  - Headache [Unknown]
  - Ocular hyperaemia [Unknown]
  - Myalgia [Unknown]
  - Intraocular pressure increased [Unknown]
  - Musculoskeletal pain [Unknown]
